FAERS Safety Report 5025038-5 (Version None)
Quarter: 2006Q2

REPORT INFORMATION
  Report Type: 
  Country: None (occurrence: None)
  Receive Date: 20060613
  Receipt Date: 20060601
  Transmission Date: 20061013
  Serious: Yes (Other)
  Sender: FDA-Public Use
  Company Number: PHFR2006MT01884

PATIENT
  Age: 43 Year
  Sex: Male

DRUGS (2)
  1. CATAFLAM [Suspect]
     Indication: TOOTHACHE
     Dosage: 50 MG, TID
     Route: 048
     Dates: start: 20060524, end: 20060530
  2. RODOGYL [Concomitant]
     Indication: TOOTH INFECTION
     Route: 065

REACTIONS (1)
  - HAEMORRHAGE [None]
